FAERS Safety Report 16253356 (Version 1)
Quarter: 2019Q2

REPORT INFORMATION
  Report Type: Spontaneous
  Country: US (occurrence: US)
  Receive Date: 20190429
  Receipt Date: 20190429
  Transmission Date: 20190711
  Serious: Yes (Other)
  Sender: FDA-Public Use
  Company Number: US-ZYDUS-036228

PATIENT
  Age: 84 Year
  Sex: Male

DRUGS (2)
  1. DESVENLAFAXINE. [Suspect]
     Active Substance: DESVENLAFAXINE
     Indication: DEPRESSION
     Route: 048
  2. VENLAFAXINE/VENLAFAXINE HYDROCHLORIDE [Suspect]
     Active Substance: VENLAFAXINE HYDROCHLORIDE
     Indication: DEPRESSION
     Route: 065

REACTIONS (6)
  - Tardive dyskinesia [Recovered/Resolved]
  - Bite [Recovered/Resolved]
  - Treatment failure [Unknown]
  - Drug withdrawal syndrome [Recovered/Resolved]
  - Oral pain [Recovered/Resolved]
  - Bruxism [Recovered/Resolved]
